FAERS Safety Report 22932112 (Version 2)
Quarter: 2023Q4

REPORT INFORMATION
  Report Type: Spontaneous
  Country: US (occurrence: None)
  Receive Date: 20230912
  Receipt Date: 20231012
  Transmission Date: 20240109
  Serious: No
  Sender: FDA-Public Use
  Company Number: 2023A206528

PATIENT
  Age: 2860 Day

DRUGS (2)
  1. SYMBICORT [Suspect]
     Active Substance: BUDESONIDE\FORMOTEROL FUMARATE DIHYDRATE
     Indication: Asthma
     Dosage: 160 UG, TWO TIMES A DAY, 80/4.5 MCG. 120 INHALATION INHALER
     Route: 055
  2. SYMBICORT [Suspect]
     Active Substance: BUDESONIDE\FORMOTEROL FUMARATE DIHYDRATE
     Indication: Hypersensitivity
     Dosage: 160 UG, TWO TIMES A DAY, 80/4.5 MCG. 120 INHALATION INHALER
     Route: 055

REACTIONS (5)
  - Nasopharyngitis [Unknown]
  - Product use issue [Unknown]
  - Wrong technique in device usage process [Unknown]
  - Device defective [Unknown]
  - Device use issue [Unknown]

NARRATIVE: CASE EVENT DATE: 20230801
